FAERS Safety Report 7628394-4 (Version None)
Quarter: 2011Q3

REPORT INFORMATION
  Report Type: 
  Country: None (occurrence: None)
  Receive Date: 20110722
  Receipt Date: 20110719
  Transmission Date: 20111222
  Serious: No
  Sender: FDA-Public Use
  Company Number: US-PFIZER INC-2011164723

PATIENT
  Sex: Male
  Weight: 83.9 kg

DRUGS (2)
  1. PRISTIQ [Suspect]
     Indication: DEPRESSION
     Dosage: 50 MG, DAILY
     Route: 048
     Dates: start: 20110601
  2. ARMODAFINIL [Concomitant]
     Indication: NARCOLEPSY
     Dosage: UNK
     Route: 048

REACTIONS (1)
  - HEADACHE [None]
